FAERS Safety Report 9788013 (Version 1)
Quarter: 2013Q4

REPORT INFORMATION
  Report Type: Spontaneous
  Country: US (occurrence: US)
  Receive Date: 20131230
  Receipt Date: 20131230
  Transmission Date: 20140711
  Serious: No
  Sender: FDA-Public Use
  Company Number: US-009507513-1312USA011858

PATIENT
  Age: 23 Year
  Sex: Female

DRUGS (1)
  1. NUVARING [Suspect]
     Dosage: 3 WEEKS IN, 1 WEEK OUT 1 RING
     Route: 067
     Dates: start: 2010

REACTIONS (1)
  - Inappropriate schedule of drug administration [Unknown]
